FAERS Safety Report 6720523-X (Version None)
Quarter: 2010Q2

REPORT INFORMATION
  Report Type: 
  Country: None (occurrence: None)
  Receive Date: 20100506
  Receipt Date: 20100422
  Transmission Date: 20101027
  Serious: Yes (Other)
  Sender: FDA-Public Use
  Company Number: 167-20484-09071637

PATIENT
  Age: 24 Year
  Sex: Female
  Weight: 111 kg

DRUGS (5)
  1. INNOHEP [Suspect]
     Indication: DEEP VEIN THROMBOSIS
     Dosage: SEE IMAGE
     Route: 042
     Dates: start: 20060628, end: 20060902
  2. INNOHEP [Suspect]
     Indication: DEEP VEIN THROMBOSIS
     Dosage: SEE IMAGE
     Route: 042
     Dates: start: 20060903, end: 20061225
  3. INNOHEP [Suspect]
     Indication: DEEP VEIN THROMBOSIS
     Dosage: SEE IMAGE
     Route: 042
     Dates: start: 20061227, end: 20070110
  4. INNOHEP [Suspect]
     Indication: DEEP VEIN THROMBOSIS
     Dosage: SEE IMAGE
     Route: 042
     Dates: start: 20070111, end: 20071014
  5. SYNTOCINON [Concomitant]

REACTIONS (4)
  - DRUG EXPOSURE DURING PREGNANCY [None]
  - INTRA-UTERINE DEATH [None]
  - POSTPARTUM HAEMORRHAGE [None]
  - PREMATURE SEPARATION OF PLACENTA [None]
